FAERS Safety Report 16913918 (Version 8)
Quarter: 2024Q2

REPORT INFORMATION
  Report Type: Report from Study
  Country: US (occurrence: US)
  Receive Date: 20191014
  Receipt Date: 20240620
  Transmission Date: 20240716
  Serious: No
  Sender: FDA-Public Use
  Company Number: US-PFIZER INC-2019437639

PATIENT
  Sex: Female
  Weight: 81.5 kg

DRUGS (3)
  1. PREGABALIN [Suspect]
     Active Substance: PREGABALIN
     Indication: Neuropathy peripheral
     Dosage: 50 MILLIGRAM, TID
     Route: 048
     Dates: start: 20190820, end: 20190823
  2. PREGABALIN [Suspect]
     Active Substance: PREGABALIN
     Dosage: 50 MILLIGRAM, TID
     Route: 048
     Dates: start: 20191016, end: 20191020
  3. ATIVAN [Concomitant]
     Active Substance: LORAZEPAM
     Indication: Anxiety
     Dosage: 0.5 MG, UNK (0.5 MG, 1-3 TIMES A DAY, BY MOUTH)
     Route: 048

REACTIONS (13)
  - Heart rate increased [Recovered/Resolved]
  - Gait disturbance [Unknown]
  - Illness [Unknown]
  - Fear [Recovered/Resolved]
  - Crying [Recovered/Resolved]
  - Feeling abnormal [Unknown]
  - Malaise [Recovered/Resolved]
  - Depressed mood [Unknown]
  - Asthenia [Unknown]
  - Headache [Recovered/Resolved]
  - Musculoskeletal stiffness [Unknown]
  - Insomnia [Unknown]
  - Drug ineffective [Unknown]
